FAERS Safety Report 19880203 (Version 1)
Quarter: 2021Q3

REPORT INFORMATION
  Report Type: Report from Study
  Country: IN (occurrence: IN)
  Receive Date: 20210925
  Receipt Date: 20210925
  Transmission Date: 20211014
  Serious: Yes (Hospitalization)
  Sender: FDA-Public Use
  Company Number: PHHY2019IN212549

PATIENT
  Age: 61 Year
  Sex: Female

DRUGS (1)
  1. VYMADA [Suspect]
     Active Substance: SACUBITRIL\VALSARTAN
     Indication: CARDIAC FAILURE CONGESTIVE
     Dosage: 100 MG, BID
     Route: 048
     Dates: start: 20190719

REACTIONS (7)
  - Asthenia [Unknown]
  - Speech disorder [Recovered/Resolved]
  - Pyrexia [Recovered/Resolved]
  - Oropharyngeal discomfort [Recovered/Resolved]
  - Gallbladder oedema [Unknown]
  - Cholelithiasis [Unknown]
  - Nephrolithiasis [Unknown]

NARRATIVE: CASE EVENT DATE: 20190826
